FAERS Safety Report 18309968 (Version 2)
Quarter: 2020Q4

REPORT INFORMATION
  Report Type: Spontaneous
  Country: US (occurrence: US)
  Receive Date: 20200925
  Receipt Date: 20201217
  Transmission Date: 20210113
  Serious: No
  Sender: FDA-Public Use
  Company Number: US-SA-2020SA254473

PATIENT

DRUGS (1)
  1. DUPIXENT [Suspect]
     Active Substance: DUPILUMAB
     Indication: PRODUCT USED FOR UNKNOWN INDICATION
     Dosage: 300 MG
     Route: 058
     Dates: start: 20200722

REACTIONS (2)
  - Inappropriate schedule of product administration [Unknown]
  - Product dose omission issue [Unknown]

NARRATIVE: CASE EVENT DATE: 20200914
